FAERS Safety Report 9299236 (Version 1)
Quarter: 2013Q2

REPORT INFORMATION
  Report Type: Spontaneous
  Country: GB (occurrence: GB)
  Receive Date: 20130520
  Receipt Date: 20130520
  Transmission Date: 20140414
  Serious: Yes (Other)
  Sender: FDA-Public Use
  Company Number: GB-ELI_LILLY_AND_COMPANY-GB201305002819

PATIENT
  Age: 9 Year
  Sex: Male
  Weight: 36 kg

DRUGS (4)
  1. STRATTERA [Suspect]
     Dosage: 18 MG, UNK
     Dates: start: 20130405, end: 20130412
  2. STRATTERA [Suspect]
     Dosage: 40 MG, UNK
     Dates: start: 20130412, end: 20130426
  3. MEDIKINET [Concomitant]
     Dosage: 20 MG, UNK
     Route: 048
     Dates: start: 20121015
  4. DIPROBASE                          /01210201/ [Concomitant]

REACTIONS (1)
  - Contusion [Unknown]
